FAERS Safety Report 14964961 (Version 2)
Quarter: 2018Q3

REPORT INFORMATION
  Report Type: Spontaneous
  Country: US (occurrence: US)
  Receive Date: 20180601
  Receipt Date: 20180830
  Transmission Date: 20181010
  Serious: No
  Sender: FDA-Public Use
  Company Number: US-LEXICON PHARMACEUTICALS, INC-18-1606-00669

PATIENT
  Sex: Male

DRUGS (20)
  1. MAGNESIUM [Concomitant]
     Active Substance: MAGNESIUM
  2. OPIUMTIN [Concomitant]
  3. ROPINIROLE. [Concomitant]
     Active Substance: ROPINIROLE
  4. ASPIR?LOW [Concomitant]
     Active Substance: ASPIRIN
  5. NIACIN. [Concomitant]
     Active Substance: NIACIN
  6. TELOTRISTAT ETHYL [Suspect]
     Active Substance: TELOTRISTAT ETHYL
     Indication: CARCINOID TUMOUR OF THE SMALL BOWEL
     Route: 048
  7. AMLODIPINE [Concomitant]
     Active Substance: AMLODIPINE BESYLATE
  8. PREDNISOLONE. [Concomitant]
     Active Substance: PREDNISOLONE
  9. OMEPRAZOLE. [Concomitant]
     Active Substance: OMEPRAZOLE
  10. INDOMETHACIN. [Concomitant]
     Active Substance: INDOMETHACIN
  11. PAROXETINE. [Concomitant]
     Active Substance: PAROXETINE
  12. VOLTAREN [Concomitant]
     Active Substance: DICLOFENAC SODIUM
  13. ALLOPURINOL. [Concomitant]
     Active Substance: ALLOPURINOL
  14. SERTRALINE [Concomitant]
     Active Substance: SERTRALINE HYDROCHLORIDE
  15. TELOTRISTAT ETHYL [Suspect]
     Active Substance: TELOTRISTAT ETHYL
     Route: 048
  16. SANDOSTATIN [Concomitant]
     Active Substance: OCTREOTIDE ACETATE
  17. TELOTRISTAT ETHYL [Suspect]
     Active Substance: TELOTRISTAT ETHYL
     Indication: CARCINOID SYNDROME
     Route: 048
     Dates: start: 20171005
  18. DICYCLOMINE [Concomitant]
     Active Substance: DICYCLOMINE HYDROCHLORIDE
  19. KLOR?CON [Concomitant]
     Active Substance: POTASSIUM CHLORIDE
  20. VITAMIN B12 [Concomitant]
     Active Substance: CYANOCOBALAMIN

REACTIONS (1)
  - Constipation [Unknown]
